FAERS Safety Report 4760115-5 (Version None)
Quarter: 2005Q3

REPORT INFORMATION
  Report Type: 
  Country: None (occurrence: None)
  Receive Date: 20050831
  Receipt Date: 20050831
  Transmission Date: 20060218
  Serious: Yes (Other)
  Sender: FDA-Public Use
  Company Number: None

PATIENT
  Age: 56 Year
  Sex: Female
  Weight: 69.4003 kg

DRUGS (1)
  1. ZICAM COLD REMEDY   ZINCUM GLUCONICUM 2X    ZICAM LLC [Suspect]
     Indication: FLUID RETENTION
     Dosage: SPRAY   2X   INHAL
     Route: 045
     Dates: start: 20050308, end: 20050312

REACTIONS (1)
  - ANOSMIA [None]
